FAERS Safety Report 20056712 (Version 1)
Quarter: 2021Q4

REPORT INFORMATION
  Report Type: Report from Study
  Country: DE (occurrence: DE)
  Receive Date: 20211111
  Receipt Date: 20211111
  Transmission Date: 20220303
  Serious: Yes (Hospitalization)
  Sender: FDA-Public Use
  Company Number: DE-TEVA-2021-DE-1975345

PATIENT
  Sex: Male

DRUGS (4)
  1. OLANZAPINE [Suspect]
     Active Substance: OLANZAPINE
     Indication: Mania
     Dosage: 7.5 MILLIGRAM DAILY;
     Route: 065
  2. VALPROIC ACID [Suspect]
     Active Substance: VALPROIC ACID
     Indication: Mania
     Dosage: 1600 MILLIGRAM DAILY;
     Route: 065
  3. FLUPENTIXOL [Suspect]
     Active Substance: FLUPENTIXOL
     Indication: Mania
     Route: 050
  4. FLUPENTIXOL [Suspect]
     Active Substance: FLUPENTIXOL
     Dosage: 8 MILLIGRAM DAILY;
     Route: 065

REACTIONS (5)
  - Drug-induced liver injury [Unknown]
  - Coagulopathy [Unknown]
  - Acute hepatic failure [Unknown]
  - Coma [Unknown]
  - Hepatorenal syndrome [Unknown]
